FAERS Safety Report 23234939 (Version 1)
Quarter: 2023Q4

REPORT INFORMATION
  Report Type: Spontaneous
  Country: US (occurrence: US)
  Receive Date: 20231128
  Receipt Date: 20231128
  Transmission Date: 20240109
  Serious: No
  Sender: FDA-Public Use
  Company Number: US-ELI_LILLY_AND_COMPANY-US202311015358

PATIENT
  Sex: Male

DRUGS (2)
  1. OLANZAPINE [Suspect]
     Active Substance: OLANZAPINE
     Indication: Insomnia
     Dosage: 1.25 MG, DAILY (1/4 OF 5 MG TABLET AT NIGHT)
     Route: 048
  2. OLANZAPINE [Suspect]
     Active Substance: OLANZAPINE
     Dosage: 2.5 MG, DAILY (1/2 OF 5 MG TABLET AT NIGHT)
     Route: 048

REACTIONS (4)
  - Off label use [Recovered/Resolved]
  - Wrong technique in product usage process [Unknown]
  - Eye swelling [Unknown]
  - Periorbital swelling [Unknown]
